FAERS Safety Report 9305195 (Version 3)
Quarter: 2013Q3

REPORT INFORMATION
  Report Type: Report from Study
  Country: NL (occurrence: NL)
  Receive Date: 20130523
  Receipt Date: 20130731
  Transmission Date: 20140515
  Serious: Yes (Death, Other)
  Sender: FDA-Public Use
  Company Number: PHHY2013NL051394

PATIENT
  Sex: Female

DRUGS (16)
  1. ZOMETA [Suspect]
     Indication: BREAST CANCER METASTATIC
     Dosage: 4 MG, PER 100 ML ONCE EVERY 26 WEEKS
     Route: 042
  2. ZOMETA [Suspect]
     Dosage: 5 MG, FOR 6 MONTHS
     Route: 042
     Dates: start: 201202
  3. ZOMETA [Suspect]
     Dosage: 4 MG, PER 100 ML ONCE EVERY 26 WEEKS
     Route: 042
     Dates: start: 20120220
  4. ZOMETA [Suspect]
     Dosage: 4 MG, PER 100 ML ONCE EVERY 26 WEEKS
     Route: 042
     Dates: start: 20130208
  5. LETROZOLE [Suspect]
     Indication: BREAST CANCER
     Dosage: UNK UKN, UNK
  6. DIURETICS [Concomitant]
  7. ANTINEOPLASTIC AGENTS [Concomitant]
  8. CALCIUM [Concomitant]
  9. ASCAL [Concomitant]
  10. GLIMEPIRIDE [Concomitant]
  11. METFORMIN [Concomitant]
  12. SELOKEEN [Concomitant]
  13. SPIRONOLACTONE [Concomitant]
  14. SIMVASTATIN [Concomitant]
  15. AMLODIPINE [Concomitant]
  16. CODEIN [Concomitant]

REACTIONS (7)
  - Cardiac failure [Fatal]
  - Renal failure [Fatal]
  - Left ventricular hypertrophy [Unknown]
  - Pulmonary hypertension [Unknown]
  - Pleural effusion [Unknown]
  - Creatinine renal clearance decreased [Unknown]
  - Oedema [Unknown]
